FAERS Safety Report 22106494 (Version 1)
Quarter: 2023Q1

REPORT INFORMATION
  Report Type: Spontaneous
  Country: TR (occurrence: TR)
  Receive Date: 20230317
  Receipt Date: 20230317
  Transmission Date: 20230418
  Serious: Yes (Other)
  Sender: FDA-Public Use
  Company Number: TR-SA-2023SA079563

PATIENT
  Sex: Male

DRUGS (4)
  1. ZALTRAP [Suspect]
     Active Substance: ZIV-AFLIBERCEPT
     Indication: Product used for unknown indication
     Dosage: UNK
  2. CAPECITABINE [Suspect]
     Active Substance: CAPECITABINE
     Dosage: UNK
     Route: 065
     Dates: start: 20210828
  3. ZOLEDRONIC ACID [Suspect]
     Active Substance: ZOLEDRONIC ACID
     Indication: Metastases to bone
     Dosage: UNK
     Route: 065
  4. FLUOROURACIL\IRINOTECAN\LEUCOVORIN [Suspect]
     Active Substance: FLUOROURACIL\IRINOTECAN\LEUCOVORIN
     Indication: Chemotherapy
     Dosage: UNK
     Route: 065

REACTIONS (10)
  - Metastases to central nervous system [Unknown]
  - Colorectal adenocarcinoma [Unknown]
  - Brain neoplasm malignant [Unknown]
  - Rectal adenocarcinoma [Unknown]
  - Rectal haemorrhage [Unknown]
  - Metastases to lung [Unknown]
  - Metastases to bone [Unknown]
  - Pulmonary mass [Unknown]
  - Oedema peripheral [Unknown]
  - Vertigo [Unknown]
